FAERS Safety Report 7315672-1 (Version None)
Quarter: 2011Q1

REPORT INFORMATION
  Report Type: 
  Country: None (occurrence: None)
  Receive Date: 20110225
  Receipt Date: 20110214
  Transmission Date: 20110831
  Serious: Yes (Other)
  Sender: FDA-Public Use
  Company Number: DE-JNJFOC-20110205605

PATIENT
  Age: 18 Year
  Sex: Male
  Weight: 68 kg

DRUGS (3)
  1. IBUPROFEN [Concomitant]
     Indication: JUVENILE ARTHRITIS
  2. METHOTREXATE [Concomitant]
     Indication: JUVENILE ARTHRITIS
  3. REMICADE [Suspect]
     Indication: JUVENILE ARTHRITIS
     Route: 042

REACTIONS (1)
  - RADICULITIS BRACHIAL [None]
